FAERS Safety Report 16488773 (Version 1)
Quarter: 2019Q2

REPORT INFORMATION
  Report Type: Spontaneous
  Country: US (occurrence: US)
  Receive Date: 20190627
  Receipt Date: 20190627
  Transmission Date: 20190711
  Serious: No
  Sender: FDA-Public Use
  Company Number: US-ASTRAZENECA-2019SE83146

PATIENT
  Sex: Female

DRUGS (1)
  1. FASENRA [Suspect]
     Active Substance: BENRALIZUMAB
     Indication: ASTHMA
     Dosage: 30MG EVERY 4 WEEKS FOR THE FIRST 3 DOSES, FOLLOWED BY ONCE EVERY 8 WEEKS THEREAFTER AS OF 7 MONTH...
     Route: 058

REACTIONS (4)
  - Adverse drug reaction [Unknown]
  - Drug ineffective [Not Recovered/Not Resolved]
  - Skin discolouration [Not Recovered/Not Resolved]
  - Erythema [Not Recovered/Not Resolved]
